FAERS Safety Report 16200280 (Version 1)
Quarter: 2019Q2

REPORT INFORMATION
  Report Type: Report from Study
  Country: JP (occurrence: JP)
  Receive Date: 20190416
  Receipt Date: 20190416
  Transmission Date: 20190711
  Serious: Yes (Hospitalization, Other)
  Sender: FDA-Public Use
  Company Number: JP-CONCORDIA PHARMACEUTICALS INC.-GSH201812-004155

PATIENT
  Age: 30 Year
  Sex: Female
  Weight: 50 kg

DRUGS (6)
  1. PREDONINE [Concomitant]
     Active Substance: PREDNISOLONE
     Dosage: DOSE OF PREDNISOLONE WAS TAPERED AFTER THE ADMINISTRATION OF 50 MG
     Dates: start: 20170509
  2. MARZULENE COMBINATION [Concomitant]
     Indication: INVESTIGATION
  3. PREDONINE [Concomitant]
     Active Substance: PREDNISOLONE
     Dosage: INCREASED TO 50MG
     Dates: start: 20170505
  4. PLAQUENIL [Suspect]
     Active Substance: HYDROXYCHLOROQUINE SULFATE
     Indication: SYSTEMIC LUPUS ERYTHEMATOSUS
     Route: 048
     Dates: start: 20170414, end: 20170504
  5. MARZULENE COMBINATION [Concomitant]
     Indication: PROPHYLAXIS
  6. PREDONINE [Concomitant]
     Active Substance: PREDNISOLONE
     Indication: SYSTEMIC LUPUS ERYTHEMATOSUS
     Dosage: INCREASED TO 30MG
     Dates: start: 20170504

REACTIONS (5)
  - Pyrexia [Recovering/Resolving]
  - Lymphadenopathy [Recovering/Resolving]
  - Pain [Recovering/Resolving]
  - Burning sensation [Recovering/Resolving]
  - Erythema multiforme [Recovering/Resolving]

NARRATIVE: CASE EVENT DATE: 20170430
